FAERS Safety Report 10657264 (Version 2)
Quarter: 2014Q4

REPORT INFORMATION
  Report Type: Report from Study
  Country: JP (occurrence: None)
  Receive Date: 20141215
  Receipt Date: 20141223
  Transmission Date: 20150529
  Serious: Yes (Hospitalization)
  Sender: FDA-Public Use
  Company Number: 2014-003582

PATIENT
  Age: 70 Year
  Sex: Female

DRUGS (7)
  1. COUGH SUPPRESSANTS AND EXPECTORANTS, COMBINAT [Concomitant]
  2. MUCODYNE (CARBOCISTEINE) [Concomitant]
     Active Substance: CARBOCYSTEINE
  3. ROSEOL (LOXOPROFEN SODIUM) [Concomitant]
  4. ACTONEL [Suspect]
     Active Substance: RISEDRONATE SODIUM
     Indication: OSTEOPOROSIS
     Route: 048
     Dates: start: 20140604
  5. THEOPHYLLINE [Concomitant]
     Active Substance: THEOPHYLLINE ANHYDROUS
  6. CALCIUM LACTATE [Concomitant]
     Active Substance: CALCIUM LACTATE
  7. CLARITHROMYCIN. [Concomitant]
     Active Substance: CLARITHROMYCIN

REACTIONS (4)
  - Artery dissection [None]
  - Aortic dissection [None]
  - Pallor [None]
  - Hypoaesthesia [None]

NARRATIVE: CASE EVENT DATE: 20141202
